FAERS Safety Report 21286056 (Version 1)
Quarter: 2022Q3

REPORT INFORMATION
  Report Type: Spontaneous
  Country: US (occurrence: None)
  Receive Date: 20220901
  Receipt Date: 20220901
  Transmission Date: 20221027
  Serious: Yes (Death)
  Sender: FDA-Public Use
  Company Number: None

PATIENT
  Age: 74 Year
  Sex: Male
  Weight: 77.56 kg

DRUGS (9)
  1. CAPECITABINE [Suspect]
     Active Substance: CAPECITABINE
     Indication: Gastric cancer
     Dosage: FREQUENCY : EVERY 12 HOURS;?
     Route: 048
  2. Comfort EZ Insulin [Concomitant]
  3. FUROSEMIDE [Concomitant]
     Active Substance: FUROSEMIDE
  4. HUMULIN NOS [Concomitant]
     Active Substance: INSULIN HUMAN
  5. INSULIN LISPRO [Concomitant]
     Active Substance: INSULIN LISPRO
  6. NITROGLYCERIN [Concomitant]
     Active Substance: NITROGLYCERIN
  7. Sublingual [Concomitant]
  8. PANTOPRAZOLE [Concomitant]
     Active Substance: PANTOPRAZOLE
  9. TRESIBA [Concomitant]
     Active Substance: INSULIN DEGLUDEC

REACTIONS (1)
  - Death [None]
